FAERS Safety Report 12156433 (Version 3)
Quarter: 2017Q4

REPORT INFORMATION
  Report Type: Spontaneous
  Country: US (occurrence: US)
  Receive Date: 20160307
  Receipt Date: 20171004
  Transmission Date: 20180320
  Serious: Yes (Other)
  Sender: FDA-Public Use
  Company Number: US-PFIZER INC-2016123092

PATIENT
  Age: 14 Year
  Sex: Male
  Weight: 66 kg

DRUGS (3)
  1. GENOTROPIN [Suspect]
     Active Substance: SOMATROPIN
     Indication: GROWTH HORMONE DEFICIENCY
     Dosage: 2.8 MG, DAILY
     Route: 058
     Dates: start: 201511
  2. GENOTROPIN [Suspect]
     Active Substance: SOMATROPIN
     Indication: HYPOPITUITARISM
     Dosage: 2.8 MG, DAILY
     Route: 058
  3. VITAMIN D3 [Concomitant]
     Active Substance: CHOLECALCIFEROL
     Dosage: UNK

REACTIONS (4)
  - Immune thrombocytopenic purpura [Unknown]
  - Increased appetite [Unknown]
  - Injection site bruising [Unknown]
  - Weight increased [Unknown]

NARRATIVE: CASE EVENT DATE: 20170214
